FAERS Safety Report 10960614 (Version 1)
Quarter: 2015Q1

REPORT INFORMATION
  Report Type: Spontaneous
  Country: None (occurrence: None)
  Receive Date: 20150326
  Receipt Date: 20150326
  Transmission Date: 20150721
  Serious: Yes (Hospitalization)
  Sender: FDA-Public Use
  Company Number: None

PATIENT
  Age: 8 Year
  Sex: Male
  Weight: 22.7 kg

DRUGS (4)
  1. CLONIDINE. [Concomitant]
     Active Substance: CLONIDINE
  2. GUANFACINE. [Concomitant]
     Active Substance: GUANFACINE
  3. ARIPIPRAZOLE. [Suspect]
     Active Substance: ARIPIPRAZOLE
     Indication: ATTENTION DEFICIT/HYPERACTIVITY DISORDER
     Route: 048
     Dates: start: 20150321, end: 20150324
  4. METHYLPHENIDATE [Concomitant]
     Active Substance: METHYLPHENIDATE

REACTIONS (3)
  - Movement disorder [None]
  - Dyskinesia [None]
  - Musculoskeletal stiffness [None]

NARRATIVE: CASE EVENT DATE: 20150324
